FAERS Safety Report 8945962 (Version 1)
Quarter: 2012Q4

REPORT INFORMATION
  Report Type: 
  Country: GR (occurrence: GR)
  Receive Date: 20121205
  Receipt Date: 20121205
  Transmission Date: 20130627
  Serious: Yes (Disabling)
  Sender: FDA-Public Use
  Company Number: GR-UCBSA-072353

PATIENT
  Age: 81 Year
  Sex: Female

DRUGS (1)
  1. CIMZIA [Suspect]
     Indication: RHEUMATOID ARTHRITIS
     Dates: start: 20120528, end: 201210

REACTIONS (2)
  - Diplegia [Unknown]
  - Drug ineffective [Unknown]
